FAERS Safety Report 6905656-7 (Version None)
Quarter: 2010Q3

REPORT INFORMATION
  Report Type: 
  Country: None (occurrence: None)
  Receive Date: 20100802
  Receipt Date: 20100722
  Transmission Date: 20110219
  Serious: Yes (Other)
  Sender: FDA-Public Use
  Company Number: 2010AC000482

PATIENT
  Age: 74 Year
  Sex: Male

DRUGS (5)
  1. DIGOXIN [Suspect]
     Dosage: PO
     Route: 048
  2. FUROSEMIDE [Concomitant]
  3. WARFARIN [Concomitant]
  4. ATORVASTATIN [Concomitant]
  5. POTASSIUM [Concomitant]

REACTIONS (5)
  - ASTHENIA [None]
  - BLOOD GLUCOSE DECREASED [None]
  - BLOOD PRESSURE DECREASED [None]
  - GASTROINTESTINAL DISORDER [None]
  - LOSS OF CONSCIOUSNESS [None]
